FAERS Safety Report 6299840-6 (Version None)
Quarter: 2009Q3

REPORT INFORMATION
  Report Type: 
  Country: None (occurrence: None)
  Receive Date: 20090806
  Receipt Date: 20090729
  Transmission Date: 20100115
  Serious: Yes (Other)
  Sender: FDA-Public Use
  Company Number: US-PURDUE-USA-2009-0039383

PATIENT
  Sex: Female

DRUGS (5)
  1. MS CONTIN TABLETS 30 MG [Suspect]
     Indication: PAIN
     Dosage: 30 MG, BID
     Route: 048
     Dates: start: 20090601, end: 20090601
  2. DESYREL [Concomitant]
     Indication: DEPRESSION
     Dosage: 150 MG, BID
     Route: 048
  3. PRILOSEC [Concomitant]
     Indication: ABDOMINAL DISCOMFORT
     Dosage: UNK
     Route: 048
  4. HORMONES NOS [Concomitant]
     Indication: HORMONE REPLACEMENT THERAPY
  5. ALLEGRA [Concomitant]
     Indication: HYPERSENSITIVITY
     Dosage: 60 MG, DAILY
     Route: 048

REACTIONS (5)
  - ANGIOEDEMA [None]
  - HYPERSENSITIVITY [None]
  - PRURITUS [None]
  - RASH [None]
  - SWELLING [None]
